FAERS Safety Report 6433347-8 (Version None)
Quarter: 2009Q4

REPORT INFORMATION
  Report Type: 
  Country: None (occurrence: None)
  Receive Date: 20091109
  Receipt Date: 20091104
  Transmission Date: 20100525
  Serious: Yes (Other)
  Sender: FDA-Public Use
  Company Number: FR-AMGEN-UK372794

PATIENT
  Age: 77 Year
  Sex: Female

DRUGS (3)
  1. NPLATE [Suspect]
     Indication: DRUG USE FOR UNKNOWN INDICATION
     Route: 065
     Dates: start: 20090601, end: 20091028
  2. ASPEGIC 1000 [Concomitant]
     Route: 065
  3. CORTISONE [Concomitant]

REACTIONS (1)
  - PLATELET COUNT ABNORMAL [None]
